FAERS Safety Report 14699076 (Version 2)
Quarter: 2018Q2

REPORT INFORMATION
  Report Type: Spontaneous
  Country: US (occurrence: US)
  Receive Date: 20180330
  Receipt Date: 20180422
  Transmission Date: 20180711
  Serious: Yes (Hospitalization, Other)
  Sender: FDA-Public Use
  Company Number: US-APOTEX-2018AP008640

PATIENT
  Age: 28 Year
  Sex: Male

DRUGS (6)
  1. PHENCYCLIDINE [Suspect]
     Active Substance: PHENCYCLIDINE
     Indication: PRODUCT USED FOR UNKNOWN INDICATION
     Dosage: UNK
     Route: 065
  2. CLONAZEPAM. [Suspect]
     Active Substance: CLONAZEPAM
     Dosage: 1 MG, EVERY EIGHT HOURS
     Route: 065
  3. CLONAZEPAM. [Suspect]
     Active Substance: CLONAZEPAM
     Indication: PRODUCT USED FOR UNKNOWN INDICATION
     Dosage: 10 TO 20 MG
     Route: 065
  4. CLONIDINE. [Suspect]
     Active Substance: CLONIDINE
     Indication: PRODUCT USED FOR UNKNOWN INDICATION
     Dosage: 0.9 MG, UNK
     Route: 065
  5. METHADONE [Concomitant]
     Active Substance: METHADONE HYDROCHLORIDE
     Indication: SUBSTANCE ABUSE
     Dosage: UNK
     Route: 065
  6. QUETIAPINE. [Concomitant]
     Active Substance: QUETIAPINE
     Indication: PRODUCT USED FOR UNKNOWN INDICATION
     Dosage: 200 MG, DAILY
     Route: 065

REACTIONS (10)
  - Suicide attempt [Unknown]
  - Heart rate decreased [Recovering/Resolving]
  - Respiratory rate decreased [Recovering/Resolving]
  - Respiratory acidosis [Recovering/Resolving]
  - Hypercapnia [Recovering/Resolving]
  - Drug screen positive [Unknown]
  - Drug abuse [Unknown]
  - Sinus bradycardia [Recovering/Resolving]
  - Intentional overdose [Unknown]
  - Potentiating drug interaction [Unknown]
